FAERS Safety Report 25668462 (Version 5)
Quarter: 2025Q4

REPORT INFORMATION
  Report Type: Spontaneous
  Country: EU (occurrence: EU)
  Receive Date: 20250812
  Receipt Date: 20251218
  Transmission Date: 20260118
  Serious: Yes (Other)
  Sender: SANDOZ
  Company Number: EU-002147023-NVSC2025DE125931

PATIENT
  Sex: Female
  Weight: 76 kg

DRUGS (5)
  1. ANASTROZOLE [Suspect]
     Active Substance: ANASTROZOLE
     Indication: Hormone receptor positive HER2 negative breast cancer
     Dosage: 1 MG, QD (TOTAL DAILY DOSE)
     Route: 048
     Dates: start: 20250609
  2. KISQALI [Suspect]
     Active Substance: RIBOCICLIB SUCCINATE
     Indication: Hormone receptor positive HER2 negative breast cancer
     Dosage: 400 MG QD (TOTAL DAILY DOSE) (21 DAYS  DAILY INTAKE, 7 DAYS PAUSE)
     Route: 048
     Dates: start: 20250609, end: 20250819
  3. KISQALI [Suspect]
     Active Substance: RIBOCICLIB SUCCINATE
     Dosage: 400 MG, QD (TOTAL DAILY DOSE) (21 DAYS  DAILY INTAKE, 7 DAYS PAUSE))
     Route: 048
     Dates: start: 20250825
  4. KISQALI [Suspect]
     Active Substance: RIBOCICLIB SUCCINATE
     Dosage: UNK (TREATMENT INTERRUPTED: 0 MG)
     Route: 048
     Dates: start: 20250820, end: 20250824
  5. GONADORELIN [Concomitant]
     Active Substance: GONADORELIN
     Indication: Hormone receptor positive HER2 negative breast cancer
     Dosage: 3.6 MG, QMO
     Route: 065
     Dates: start: 20250611

REACTIONS (4)
  - Neutropenia [Recovered/Resolved]
  - Pain in extremity [Not Recovered/Not Resolved]
  - Hyperhidrosis [Not Recovered/Not Resolved]
  - Arthralgia [Not Recovered/Not Resolved]

NARRATIVE: CASE EVENT DATE: 20250804
